FAERS Safety Report 9538781 (Version 2)
Quarter: 2013Q3

REPORT INFORMATION
  Report Type: Spontaneous
  Country: GB (occurrence: GB)
  Receive Date: 20130920
  Receipt Date: 20130920
  Transmission Date: 20140515
  Serious: Yes (Other)
  Sender: FDA-Public Use
  Company Number: PHFR2013GB004770

PATIENT
  Age: 65 Year
  Sex: Male

DRUGS (6)
  1. CLOZARIL [Suspect]
     Indication: SCHIZOPHRENIA
     Dosage: 350 MG, DAILY
     Route: 048
     Dates: start: 20010701
  2. CLOZARIL [Suspect]
     Dosage: UNK
     Route: 048
     Dates: start: 20130823
  3. DOMPERIDONE [Concomitant]
     Dosage: 30 MG, DAILY
     Route: 048
  4. LANSOPRAZOLE [Concomitant]
     Dosage: 60 MG, DAILY
     Route: 048
  5. SIMVASTATIN [Concomitant]
     Dosage: 40 MG, DAILY
     Route: 048
  6. SODIUM VALPROATE [Concomitant]
     Indication: AFFECTIVE DISORDER
     Dosage: 2000 MG, DAILY
     Route: 048

REACTIONS (5)
  - Anxiety [Unknown]
  - Schizophrenia [Recovered/Resolved]
  - White blood cell count decreased [Recovered/Resolved]
  - Neutrophil count decreased [Recovered/Resolved]
  - Somnolence [Unknown]
